FAERS Safety Report 7485451-3 (Version None)
Quarter: 2011Q2

REPORT INFORMATION
  Report Type: 
  Country: None (occurrence: None)
  Receive Date: 20110517
  Receipt Date: 20110512
  Transmission Date: 20111010
  Serious: Yes (Death, Life-Threatening, Hospitalization)
  Sender: FDA-Public Use
  Company Number: DE-SANOFI-AVENTIS-2011SA029316

PATIENT
  Age: 83 Year
  Sex: Male

DRUGS (9)
  1. NEXIUM [Concomitant]
     Route: 048
     Dates: end: 20060102
  2. FERRO ^SANOL^ [Concomitant]
     Route: 048
     Dates: start: 20051215, end: 20060102
  3. YEAST [Concomitant]
     Route: 048
     Dates: start: 20051227, end: 20060102
  4. NOVALGIN [Concomitant]
     Route: 048
     Dates: start: 20051228, end: 20060102
  5. KALINOR [Concomitant]
     Dosage: 1 BR.-TBL.
     Route: 048
     Dates: start: 20051214, end: 20060102
  6. FUROSEMIDE [Suspect]
     Route: 048
     Dates: end: 20060102
  7. THEOPHYLLINE [Concomitant]
     Route: 048
     Dates: end: 20060102
  8. LISINOPRIL [Concomitant]
     Route: 048
     Dates: end: 20060102
  9. GLIANIMON [Concomitant]
     Route: 048
     Dates: start: 20041001, end: 20060102

REACTIONS (3)
  - PULMONARY EMBOLISM [None]
  - DYSPNOEA [None]
  - DEATH [None]
